FAERS Safety Report 5721021-2 (Version None)
Quarter: 2008Q2

REPORT INFORMATION
  Report Type: 
  Country: None (occurrence: None)
  Receive Date: 20080429
  Receipt Date: 20080423
  Transmission Date: 20081010
  Serious: Yes (Death)
  Sender: FDA-Public Use
  Company Number: GB-TEVA-170633ISR

PATIENT
  Age: 69 Year
  Sex: Female
  Weight: 94.5 kg

DRUGS (1)
  1. PACLITAXEL [Suspect]
     Indication: OVARIAN CANCER
     Dates: start: 20080410, end: 20080410

REACTIONS (1)
  - CARDIO-RESPIRATORY ARREST [None]
